FAERS Safety Report 17473574 (Version 1)
Quarter: 2020Q1

REPORT INFORMATION
  Report Type: Spontaneous
  Country: US (occurrence: US)
  Receive Date: 20200228
  Receipt Date: 20200228
  Transmission Date: 20200409
  Serious: Yes (Disabling)
  Sender: FDA-Public Use
  Company Number: None

PATIENT
  Age: 41 Year
  Sex: Female
  Weight: 59.85 kg

DRUGS (3)
  1. MAGNESIUM 500MG [Concomitant]
  2. IBUPROFEN. [Concomitant]
     Active Substance: IBUPROFEN
  3. AIMOVIG [Suspect]
     Active Substance: ERENUMAB-AOOE
     Indication: MIGRAINE
     Route: 058
     Dates: start: 20180927, end: 20181027

REACTIONS (6)
  - Crohn^s disease [None]
  - Anxiety [None]
  - Migraine [None]
  - Fatigue [None]
  - Insomnia [None]
  - Influenza like illness [None]

NARRATIVE: CASE EVENT DATE: 20191110
